FAERS Safety Report 7648585-6 (Version None)
Quarter: 2011Q3

REPORT INFORMATION
  Report Type: 
  Country: None (occurrence: None)
  Receive Date: 20110801
  Receipt Date: 20110729
  Transmission Date: 20111222
  Serious: No
  Sender: FDA-Public Use
  Company Number: US-PFIZER INC-2011173577

PATIENT
  Sex: Male
  Weight: 92.5 kg

DRUGS (1)
  1. ADVIL PM [Suspect]
     Indication: INSOMNIA
     Dosage: UNK, 1X/DAY
     Route: 048
     Dates: start: 20110701

REACTIONS (1)
  - SOMNOLENCE [None]
